FAERS Safety Report 8901485 (Version 1)
Quarter: 2012Q4

REPORT INFORMATION
  Report Type: 
  Country: US (occurrence: US)
  Receive Date: 20121108
  Receipt Date: 20121108
  Transmission Date: 20130627
  Serious: No
  Sender: FDA-Public Use
  Company Number: US-009507513-1211USA002872

PATIENT

DRUGS (2)
  1. SINGULAIR [Suspect]
     Indication: ASTHMA
     Dosage: UNK
  2. SINGULAIR [Suspect]
     Indication: HYPERSENSITIVITY

REACTIONS (2)
  - Poor quality sleep [Unknown]
  - Abnormal dreams [Unknown]
